FAERS Safety Report 4918793-3 (Version None)
Quarter: 2006Q1

REPORT INFORMATION
  Report Type: 
  Country: None (occurrence: None)
  Receive Date: 20060221
  Receipt Date: 20060221
  Transmission Date: 20060701
  Serious: Yes (Hospitalization)
  Sender: FDA-Public Use
  Company Number: None

PATIENT
  Sex: Female
  Weight: 49 kg

DRUGS (2)
  1. CARBOPLATIN [Suspect]
     Indication: NON-SMALL CELL LUNG CANCER
     Dosage: 573.04 MG
  2. TAXOL [Suspect]
     Dosage: 223.5 MG
     Dates: start: 20060201

REACTIONS (8)
  - ATELECTASIS [None]
  - ATRIAL FIBRILLATION [None]
  - BRONCHIAL OBSTRUCTION [None]
  - DYSPNOEA [None]
  - MEDIASTINAL DISORDER [None]
  - NEOPLASM [None]
  - OBSTRUCTIVE AIRWAYS DISORDER [None]
  - PLEURAL EFFUSION [None]
